FAERS Safety Report 11671946 (Version 1)
Quarter: 2015Q4

REPORT INFORMATION
  Report Type: Spontaneous
  Country: US (occurrence: None)
  Receive Date: 20151027
  Receipt Date: 20151027
  Transmission Date: 20160304
  Serious: Yes (Hospitalization)
  Sender: FDA-Public Use
  Company Number: None

PATIENT
  Age: 50 Year
  Sex: Male
  Weight: 71.3 kg

DRUGS (1)
  1. CISPLATIN. [Suspect]
     Active Substance: CISPLATIN
     Dates: end: 20121224

REACTIONS (13)
  - Hypophagia [None]
  - Toxicity to various agents [None]
  - Pneumonia aspiration [None]
  - Catheter site haemorrhage [None]
  - Dysphagia [None]
  - Pulmonary oedema [None]
  - Lip swelling [None]
  - Nausea [None]
  - Haemoptysis [None]
  - Dyspnoea [None]
  - Sepsis [None]
  - Deafness [None]
  - Odynophagia [None]

NARRATIVE: CASE EVENT DATE: 20121206
